FAERS Safety Report 15356085 (Version 1)
Quarter: 2018Q3

REPORT INFORMATION
  Report Type: Spontaneous
  Country: US (occurrence: US)
  Receive Date: 20180830
  Receipt Date: 20180830
  Transmission Date: 20181010
  Serious: No
  Sender: FDA-Public Use
  Company Number: None

PATIENT
  Age: 74 Year
  Sex: Female

DRUGS (1)
  1. ENBREL [Suspect]
     Active Substance: ETANERCEPT
     Indication: PSORIASIS
     Dosage: INJECT 50MG SUBCUTANEOUSLY TWO TIMES A WEEK 72?96 HOURS APART FOR 3 MONTHS AS DIRECTED
     Route: 058
     Dates: start: 201805

REACTIONS (1)
  - Unevaluable event [None]
